FAERS Safety Report 4270995-8 (Version None)
Quarter: 2004Q1

REPORT INFORMATION
  Report Type: 
  Country: None (occurrence: None)
  Receive Date: 20040114
  Receipt Date: 20040108
  Transmission Date: 20041129
  Serious: Yes (Hospitalization)
  Sender: FDA-Public Use
  Company Number: WAES 0401USA00661

PATIENT
  Age: 14 Year
  Sex: Female
  Weight: 43 kg

DRUGS (1)
  1. STROMECTOL [Suspect]
     Route: 048
     Dates: start: 20030626, end: 20030626

REACTIONS (4)
  - ASTHENIA [None]
  - LYMPHADENITIS [None]
  - MYALGIA [None]
  - OEDEMA PERIPHERAL [None]
